FAERS Safety Report 24652391 (Version 1)
Quarter: 2024Q4

REPORT INFORMATION
  Report Type: Spontaneous
  Country: US (occurrence: US)
  Receive Date: 20241122
  Receipt Date: 20241122
  Transmission Date: 20250115
  Serious: No
  Sender: ALVOGEN
  Company Number: US-ALVOGEN-2024095624

PATIENT
  Sex: Female

DRUGS (2)
  1. TERIPARATIDE [Suspect]
     Active Substance: TERIPARATIDE
     Indication: Product used for unknown indication
     Dosage: PREVIOUS PEN
     Dates: start: 202407
  2. TERIPARATIDE [Suspect]
     Active Substance: TERIPARATIDE
     Indication: Product used for unknown indication
     Dosage: EXP. DATE: JUL-2025
     Dates: start: 2024

REACTIONS (2)
  - Device malfunction [Unknown]
  - Device operational issue [Unknown]

NARRATIVE: CASE EVENT DATE: 20241003
